FAERS Safety Report 16204585 (Version 1)
Quarter: 2019Q2

REPORT INFORMATION
  Report Type: Spontaneous
  Country: US (occurrence: US)
  Receive Date: 20190416
  Receipt Date: 20190416
  Transmission Date: 20190711
  Serious: Yes (Other)
  Sender: FDA-Public Use
  Company Number: US-HORIZON-PEN-0396-2019

PATIENT
  Age: 65 Year
  Sex: Male

DRUGS (4)
  1. PENNSAID [Suspect]
     Active Substance: DICLOFENAC SODIUM
     Indication: BACK PAIN
     Dosage: 2 SAMPLE PACKETS AT NIGHT
     Dates: start: 201904, end: 201904
  2. GABAPENTIN. [Concomitant]
     Active Substance: GABAPENTIN
  3. AVINZA [Concomitant]
     Active Substance: MORPHINE SULFATE
  4. HYDROCODONE [Concomitant]
     Active Substance: HYDROCODONE

REACTIONS (6)
  - Drug ineffective for unapproved indication [Not Recovered/Not Resolved]
  - Off label use [Not Recovered/Not Resolved]
  - Intentional product misuse [Not Recovered/Not Resolved]
  - Skin swelling [Not Recovered/Not Resolved]
  - Rash [Not Recovered/Not Resolved]
  - Ear swelling [Not Recovered/Not Resolved]

NARRATIVE: CASE EVENT DATE: 201904
